FAERS Safety Report 7951077-8 (Version None)
Quarter: 2011Q4

REPORT INFORMATION
  Report Type: 
  Country: None (occurrence: None)
  Receive Date: 20111201
  Receipt Date: 20111122
  Transmission Date: 20120403
  Serious: Yes (Disabling)
  Sender: FDA-Public Use
  Company Number: FR-BAYER-2011-113285

PATIENT
  Sex: Female

DRUGS (1)
  1. JASMINE [Suspect]
     Dosage: UNK
     Route: 048

REACTIONS (1)
  - DEAFNESS BILATERAL [None]
